FAERS Safety Report 6207712-8 (Version None)
Quarter: 2009Q2

REPORT INFORMATION
  Report Type: 
  Country: None (occurrence: None)
  Receive Date: 20090528
  Receipt Date: 20090525
  Transmission Date: 20091009
  Serious: Yes (Other)
  Sender: FDA-Public Use
  Company Number: CA-MERCK-0905CAN00088

PATIENT
  Age: 62 Year
  Sex: Female

DRUGS (1)
  1. ALENDRONATE SODIUM [Suspect]
     Indication: OSTEOPOROSIS
     Route: 048
     Dates: start: 20060104

REACTIONS (3)
  - CHRONIC LYMPHOCYTIC LEUKAEMIA STAGE 0 [None]
  - FALL [None]
  - HIP FRACTURE [None]
